FAERS Safety Report 9881965 (Version 2)
Quarter: 2014Q1

REPORT INFORMATION
  Report Type: Report from Study
  Country: AU (occurrence: AU)
  Receive Date: 20140207
  Receipt Date: 20140317
  Transmission Date: 20141002
  Serious: Yes (Death, Other)
  Sender: FDA-Public Use
  Company Number: AU-BRISTOL-MYERS SQUIBB COMPANY-20126439

PATIENT
  Age: 47 Year
  Sex: Female

DRUGS (9)
  1. YERVOY [Suspect]
     Indication: METASTATIC MALIGNANT MELANOMA
     Dosage: INJECTION?255MG
     Dates: start: 20130819, end: 20130909
  2. MS CONTIN [Concomitant]
  3. SODIBIC [Concomitant]
  4. NISTATINA [Concomitant]
  5. ATROVENT [Concomitant]
  6. SALBUTAMOL [Concomitant]
  7. PREDNISOLONE [Concomitant]
  8. PANTOPRAZOLE [Concomitant]
  9. ORDINE [Concomitant]
     Dosage: 1 DF : 5-10MG?2 HOURS

REACTIONS (3)
  - Malignant neoplasm progression [Fatal]
  - Lower respiratory tract infection [Recovered/Resolved]
  - Pneumonitis [Recovered/Resolved]
